FAERS Safety Report 4759359-8 (Version None)
Quarter: 2005Q3

REPORT INFORMATION
  Report Type: 
  Country: None (occurrence: None)
  Receive Date: 20050831
  Receipt Date: 20050817
  Transmission Date: 20060218
  Serious: Yes (Other)
  Sender: FDA-Public Use
  Company Number: USA0508105809

PATIENT
  Age: 70 Year
  Sex: Female

DRUGS (3)
  1. EVISTA [Suspect]
     Indication: BONE DENSITY DECREASED
     Dosage: 60 MG DAY
  2. FORTEO [Suspect]
     Indication: BONE DENSITY DECREASED
     Dates: start: 20050729
  3. CALCIUM GLUCONATE [Concomitant]

REACTIONS (5)
  - HOT FLUSH [None]
  - HYPERSENSITIVITY [None]
  - PHARMACEUTICAL PRODUCT COMPLAINT [None]
  - RETINAL TEAR [None]
  - TINNITUS [None]
